FAERS Safety Report 22772782 (Version 2)
Quarter: 2024Q2

REPORT INFORMATION
  Report Type: Spontaneous
  Country: PT (occurrence: PT)
  Receive Date: 20230801
  Receipt Date: 20240527
  Transmission Date: 20240716
  Serious: Yes (Death, Life-Threatening, Hospitalization, Other)
  Sender: FDA-Public Use
  Company Number: PT-DECOMED-2023-0016

PATIENT
  Age: 58 Year
  Sex: Male

DRUGS (11)
  1. OLANZAPINE [Suspect]
     Active Substance: OLANZAPINE
     Indication: Depression
     Dosage: 20 MILLIGRAM, ONCE A DAY
     Route: 065
  2. OLANZAPINE [Suspect]
     Active Substance: OLANZAPINE
     Indication: Pneumonia bacterial
  3. SERTRALINE [Suspect]
     Active Substance: SERTRALINE HYDROCHLORIDE
     Indication: Pneumonia bacterial
     Dosage: 100 MILLIGRAM, ONCE A DAY
     Route: 065
  4. SERTRALINE [Suspect]
     Active Substance: SERTRALINE HYDROCHLORIDE
     Indication: Depression
  5. DIAZEPAM [Suspect]
     Active Substance: DIAZEPAM
     Indication: Neuroleptic malignant syndrome
     Dosage: UNK
     Route: 065
  6. DIAZEPAM [Suspect]
     Active Substance: DIAZEPAM
     Indication: Depression
  7. BROMOCRIPTINE [Suspect]
     Active Substance: BROMOCRIPTINE
     Indication: Depression
     Dosage: UNK
     Route: 065
  8. BROMOCRIPTINE [Suspect]
     Active Substance: BROMOCRIPTINE
     Indication: Neuroleptic malignant syndrome
  9. CLONAZEPAM [Suspect]
     Active Substance: CLONAZEPAM
     Indication: Depression
     Dosage: 1.5 MILLIGRAM, ONCE A DAY
     Route: 065
  10. CLONAZEPAM [Suspect]
     Active Substance: CLONAZEPAM
     Indication: Pneumonia bacterial
  11. BUTYLSCOPOLAMINE [Concomitant]
     Active Substance: BUTYLSCOPOLAMINE
     Indication: Product used for unknown indication
     Dosage: UNK
     Route: 065

REACTIONS (11)
  - Neuroleptic malignant syndrome [Fatal]
  - Drug ineffective [Fatal]
  - Death [Fatal]
  - Hyperthermia [Unknown]
  - Dysphagia [Unknown]
  - Hyperventilation [Unknown]
  - Hyperhidrosis [Unknown]
  - Salivary hypersecretion [Unknown]
  - Respiratory disorder [Unknown]
  - Tachycardia [Unknown]
  - Altered state of consciousness [Unknown]
